FAERS Safety Report 23197394 (Version 1)
Quarter: 2023Q4

REPORT INFORMATION
  Report Type: Spontaneous
  Country: MX (occurrence: MX)
  Receive Date: 20231117
  Receipt Date: 20231117
  Transmission Date: 20240110
  Serious: Yes (Other)
  Sender: FDA-Public Use
  Company Number: MX-SUN PHARMACEUTICAL INDUSTRIES LTD-2023R1-418443

PATIENT
  Age: 2 Decade
  Sex: Male

DRUGS (3)
  1. DOCETAXEL [Suspect]
     Active Substance: DOCETAXEL\DOCETAXEL ANHYDROUS
     Indication: Angiosarcoma
     Dosage: 100 MILLIGRAM, TWO CONSECUTIVE DAYS EVERY 2 WEEKS
     Route: 065
  2. GEMCITABINE [Suspect]
     Active Substance: GEMCITABINE
     Indication: Angiosarcoma
     Dosage: 1400 MILLIGRAM, TWO CONSECUTIVE DAYS EVERY 2 WEEKS
     Route: 065
  3. BEVACIZUMAB [Suspect]
     Active Substance: BEVACIZUMAB
     Indication: Angiosarcoma
     Dosage: 800 MILLIGRAM, TWO CONSECUTIVE DAYS EVERY 2 WEEKS
     Route: 065

REACTIONS (2)
  - Haemoptysis [Recovered/Resolved]
  - Therapy partial responder [Unknown]
